FAERS Safety Report 7034002-6 (Version None)
Quarter: 2010Q4

REPORT INFORMATION
  Report Type: 
  Country: None (occurrence: None)
  Receive Date: 20101006
  Receipt Date: 20100930
  Transmission Date: 20110411
  Serious: Yes (Hospitalization)
  Sender: FDA-Public Use
  Company Number: 2010MA003158

PATIENT
  Age: 23 Year
  Sex: Female
  Weight: 42 kg

DRUGS (1)
  1. FEVERALL [Suspect]
     Dosage: 72 G; PO
     Route: 048

REACTIONS (4)
  - INTERNATIONAL NORMALISED RATIO INCREASED [None]
  - JAUNDICE [None]
  - LIVER INJURY [None]
  - OVERDOSE [None]
